FAERS Safety Report 9530756 (Version 1)
Quarter: 2013Q2

REPORT INFORMATION
  Report Type: Spontaneous
  Country: US (occurrence: None)
  Receive Date: 20130418
  Receipt Date: 20130418
  Transmission Date: 20140414
  Serious: Yes (Other)
  Sender: FDA-Public Use
  Company Number: 0907USA03735

PATIENT
  Age: 7 Year
  Sex: Male
  Weight: 24 kg

DRUGS (1)
  1. SINGULAIR [Suspect]
     Indication: SEASONAL ALLERGY
     Dosage: 5 MG, HS, ORAL
     Route: 048
     Dates: start: 20080601, end: 20080818

REACTIONS (1)
  - Insomnia [None]
